FAERS Safety Report 20945014 (Version 10)
Quarter: 2025Q3

REPORT INFORMATION
  Report Type: Report from Study
  Country: US (occurrence: US)
  Receive Date: 20220610
  Receipt Date: 20250922
  Transmission Date: 20251020
  Serious: Yes (Other)
  Sender: ABBVIE
  Company Number: US-ABBVIE-22K-163-4426639-00

PATIENT
  Age: 64 Year
  Sex: Female

DRUGS (4)
  1. SKYRIZI [Suspect]
     Active Substance: RISANKIZUMAB-RZAA
     Indication: Psoriasis
     Dosage: STRENGTH: 150 MG
     Route: 058
     Dates: end: 202204
  2. SKYRIZI [Suspect]
     Active Substance: RISANKIZUMAB-RZAA
     Route: 058
  3. PFIZER-BIONTECH COVID-19 VACCINE [Suspect]
     Active Substance: TOZINAMERAN
     Indication: COVID-19 immunisation
     Route: 030
     Dates: start: 20210825, end: 20210825
  4. PFIZER-BIONTECH COVID-19 VACCINE [Suspect]
     Active Substance: TOZINAMERAN
     Indication: COVID-19 immunisation
     Route: 030
     Dates: start: 20210916, end: 20210916

REACTIONS (9)
  - Chronic kidney disease [Recovered/Resolved]
  - Cardiac failure congestive [Not Recovered/Not Resolved]
  - Muscle spasms [Unknown]
  - Nasopharyngitis [Unknown]
  - Psoriasis [Unknown]
  - Diabetic ketoacidosis [Unknown]
  - Renal failure [Recovered/Resolved]
  - Diabetes mellitus [Unknown]
  - Memory impairment [Not Recovered/Not Resolved]

NARRATIVE: CASE EVENT DATE: 20220501
